FAERS Safety Report 8462841-3 (Version None)
Quarter: 2012Q2

REPORT INFORMATION
  Report Type: 
  Country: None (occurrence: None)
  Receive Date: 20120625
  Receipt Date: 20120618
  Transmission Date: 20120825
  Serious: Yes (Other)
  Sender: FDA-Public Use
  Company Number: BR-ROCHE-699091

PATIENT
  Sex: Female
  Weight: 46 kg

DRUGS (5)
  1. CLONAZEPAM [Suspect]
     Indication: DEPRESSION
     Dosage: 2 MG TABLET BEFORE SLEEP
     Route: 048
  2. SWINE FLU VACCINE [Suspect]
     Indication: PROPHYLAXIS
     Dosage: ONE SINGLE DOSE, STOP DATE: 2010
     Route: 030
  3. APRACUR (BRAZIL) [Concomitant]
     Indication: PYREXIA
     Dosage: WHEN NECESSARY
     Route: 048
  4. METAMUCIL-2 [Concomitant]
     Route: 048
  5. OMEPRAZOLE [Concomitant]
     Indication: DYSPEPSIA
     Dosage: WHEN NECESSARY
     Route: 048

REACTIONS (14)
  - ILL-DEFINED DISORDER [None]
  - BALANCE DISORDER [None]
  - TREMOR [None]
  - URINE OUTPUT DECREASED [None]
  - DEPENDENCE [None]
  - HEPATITIS C [None]
  - PARAESTHESIA [None]
  - HYPERHIDROSIS [None]
  - NAUSEA [None]
  - WITHDRAWAL SYNDROME [None]
  - MALAISE [None]
  - PYREXIA [None]
  - SOMNOLENCE [None]
  - ABDOMINAL PAIN UPPER [None]
